FAERS Safety Report 6419720-2 (Version None)
Quarter: 2009Q4

REPORT INFORMATION
  Report Type: 
  Country: None (occurrence: None)
  Receive Date: 20091013
  Receipt Date: 20090602
  Transmission Date: 20100525
  Serious: No
  Sender: FDA-Public Use
  Company Number: 2009BM000123

PATIENT
  Age: 38 Year
  Sex: Female
  Weight: 56 kg

DRUGS (7)
  1. KUVAN [Suspect]
     Indication: PHENYLKETONURIA
     Dosage: 1100 MG;QD;PO;900 MG;QD;PO 1100MG;QD;PO
     Route: 048
     Dates: start: 20090603, end: 20090101
  2. KUVAN [Suspect]
     Indication: PHENYLKETONURIA
     Dosage: 1100 MG;QD;PO;900 MG;QD;PO 1100MG;QD;PO
     Route: 048
     Dates: start: 20090320, end: 20090602
  3. KUVAN [Suspect]
     Indication: PHENYLKETONURIA
     Dosage: 1100 MG;QD;PO;900 MG;QD;PO 1100MG;QD;PO
     Route: 048
     Dates: start: 20090101
  4. CYMBALTA [Suspect]
     Indication: DRUG USE FOR UNKNOWN INDICATION
     Dosage: 60 MG;QD;
     Dates: start: 20071101
  5. XANAX (CON.) [Concomitant]
  6. PREVACID (CON.) [Concomitant]
  7. NUTRIENTS WITHOUT PHENYLALANINE (CON.) [Concomitant]

REACTIONS (4)
  - CHILLS [None]
  - DRUG INTERACTION [None]
  - HOT FLUSH [None]
  - NIGHT SWEATS [None]
